FAERS Safety Report 7942952-9 (Version None)
Quarter: 2011Q4

REPORT INFORMATION
  Report Type: 
  Country: None (occurrence: None)
  Receive Date: 20111128
  Receipt Date: 20111121
  Transmission Date: 20120403
  Serious: Yes (Hospitalization)
  Sender: FDA-Public Use
  Company Number: CH-MERCK-1110USA01543

PATIENT
  Age: 80 Year
  Sex: Male
  Weight: 74 kg

DRUGS (7)
  1. JANUVIA [Suspect]
     Indication: TYPE 2 DIABETES MELLITUS
     Route: 048
     Dates: start: 20090113
  2. NEBIVOLOL HCL [Concomitant]
     Indication: HYPERTENSION
     Route: 048
     Dates: start: 20100101
  3. COVERSUM COMBI [Concomitant]
     Indication: HYPERTENSION
     Route: 048
     Dates: start: 20101213
  4. GLIMARYL [Concomitant]
     Indication: TYPE 2 DIABETES MELLITUS
     Route: 048
     Dates: start: 20080101, end: 20110912
  5. PLAVIX [Concomitant]
     Indication: CORONARY ARTERY DISEASE
     Route: 048
     Dates: start: 20080101
  6. AMLODIPINE [Concomitant]
     Indication: HYPERTENSION
     Route: 065
     Dates: start: 20090101
  7. ATORVASTATIN CALCIUM [Concomitant]
     Indication: HYPERCHOLESTEROLAEMIA
     Route: 048
     Dates: start: 20080101

REACTIONS (11)
  - GASTRITIS [None]
  - METAPLASIA [None]
  - LEUKOCYTOCLASTIC VASCULITIS [None]
  - LINEAR IGA DISEASE [None]
  - PURPURA [None]
  - ORAL LICHEN PLANUS [None]
  - GASTRIC MUCOSAL HYPERTROPHY [None]
  - HYPERPLASIA [None]
  - NORMOCHROMIC NORMOCYTIC ANAEMIA [None]
  - SKIN EXFOLIATION [None]
  - RENAL IMPAIRMENT [None]
